FAERS Safety Report 6821323-2 (Version None)
Quarter: 2010Q3

REPORT INFORMATION
  Report Type: 
  Country: None (occurrence: None)
  Receive Date: 20100707
  Receipt Date: 20080701
  Transmission Date: 20110219
  Serious: No
  Sender: FDA-Public Use
  Company Number: US-PFIZER INC-2008055976

PATIENT
  Age: 18 Year
  Sex: Female

DRUGS (2)
  1. ZOLOFT [Suspect]
     Dates: start: 20080501
  2. CILEST [Concomitant]

REACTIONS (1)
  - MENSTRUATION IRREGULAR [None]
